FAERS Safety Report 7478874-X (Version None)
Quarter: 2011Q2

REPORT INFORMATION
  Report Type: 
  Country: None (occurrence: None)
  Receive Date: 20110513
  Receipt Date: 20110509
  Transmission Date: 20111010
  Serious: Yes (Death, Congenital Anomaly)
  Sender: FDA-Public Use
  Company Number: FR-ASTRAZENECA-2011SE27651

PATIENT
  Age: 0 Week
  Sex: Female

DRUGS (1)
  1. ZOMIG [Suspect]
     Route: 064

REACTIONS (2)
  - MULTIPLE CONGENITAL ABNORMALITIES [None]
  - EXOMPHALOS [None]
